FAERS Safety Report 5415428-0 (Version None)
Quarter: 2007Q3

REPORT INFORMATION
  Report Type: 
  Country: None (occurrence: None)
  Receive Date: 20070815
  Receipt Date: 20070807
  Transmission Date: 20080115
  Serious: Yes (Other)
  Sender: FDA-Public Use
  Company Number: US-BAYER-200712409BWH

PATIENT
  Age: 71 Year
  Sex: Male

DRUGS (5)
  1. NEXAVAR [Suspect]
     Indication: HEPATIC NEOPLASM MALIGNANT
     Dosage: TOTAL DAILY DOSE: 800 MG  UNIT DOSE: 200 MG
     Route: 048
     Dates: start: 20070601, end: 20070731
  2. NEXIUM [Concomitant]
  3. AMBIEN [Concomitant]
  4. SPIROLACTATE [Concomitant]
  5. LASIX [Concomitant]

REACTIONS (5)
  - ASCITES [None]
  - BLOOD THYROID STIMULATING HORMONE INCREASED [None]
  - DIARRHOEA [None]
  - DYSGEUSIA [None]
  - FATIGUE [None]
